FAERS Safety Report 9378670 (Version 1)
Quarter: 2013Q2

REPORT INFORMATION
  Report Type: Spontaneous
  Country: IT (occurrence: None)
  Receive Date: 20130626
  Receipt Date: 20130626
  Transmission Date: 20140414
  Serious: Yes (Congenital Anomaly)
  Sender: FDA-Public Use
  Company Number: VAL_02580_2013

PATIENT
  Sex: Male
  Weight: 3.3 kg

DRUGS (4)
  1. CALCITRIOL [Suspect]
     Indication: PRODUCT USED FOR UNKNOWN INDICATION
     Dosage: (DF)
     Route: 064
  2. MAGALDRATE [Suspect]
     Indication: PRODUCT USED FOR UNKNOWN INDICATION
     Dosage: (DF)
     Route: 064
  3. PREDNISONE (PREDNISONE) [Suspect]
     Indication: PRODUCT USED FOR UNKNOWN INDICATION
     Dosage: DF
     Route: 064
  4. PHENOBARBITAL (PHENOBARBITAL) [Suspect]
     Indication: EPILEPSY
     Route: 064

REACTIONS (2)
  - Ventricular septal defect [None]
  - Maternal drugs affecting foetus [None]
